FAERS Safety Report 7300997-6 (Version None)
Quarter: 2010Q4

REPORT INFORMATION
  Report Type: 
  Country: None (occurrence: None)
  Receive Date: 20101230
  Receipt Date: 20100519
  Transmission Date: 20110411
  Serious: Yes (Other)
  Sender: FDA-Public Use
  Company Number: 20100213

PATIENT
  Age: 59 Year
  Sex: Female
  Weight: 107.5025 kg

DRUGS (1)
  1. VENOFER [Suspect]
     Indication: IRON DEFICIENCY ANAEMIA
     Dosage: 200 MG INTRAVENOUS DRIP
     Route: 041
     Dates: start: 20100510, end: 20100510

REACTIONS (1)
  - ANAPHYLACTOID REACTION [None]
